FAERS Safety Report 5093842-3 (Version None)
Quarter: 2006Q3

REPORT INFORMATION
  Report Type: 
  Country: None (occurrence: None)
  Receive Date: 20060829
  Receipt Date: 20060829
  Transmission Date: 20061208
  Serious: Yes (Other)
  Sender: FDA-Public Use
  Company Number: None

PATIENT
  Age: 68 Year
  Sex: Male
  Weight: 100.9 kg

DRUGS (1)
  1. METFORMIN HCL [Suspect]

REACTIONS (1)
  - DIARRHOEA [None]
